FAERS Safety Report 11493862 (Version 1)
Quarter: 2015Q3

REPORT INFORMATION
  Report Type: Spontaneous
  Country: US (occurrence: US)
  Receive Date: 20150911
  Receipt Date: 20150911
  Transmission Date: 20151125
  Serious: No
  Sender: FDA-Public Use
  Company Number: US-ROCHE-1022683

PATIENT
  Sex: Female

DRUGS (2)
  1. COPEGUS [Suspect]
     Active Substance: RIBAVIRIN
     Indication: HEPATITIS C
     Dosage: LENGTH OF TREATMENT - 6 MONTHS
     Route: 048
     Dates: start: 20111012
  2. PEGASYS [Suspect]
     Active Substance: PEGINTERFERON ALFA-2A
     Indication: HEPATITIS C
     Dosage: LENGTH OF TREATMENT - 6 MONTHS
     Route: 058
     Dates: start: 20111012

REACTIONS (2)
  - Fatigue [Unknown]
  - Vomiting [Unknown]
